FAERS Safety Report 7460596-2 (Version None)
Quarter: 2011Q2

REPORT INFORMATION
  Report Type: 
  Country: None (occurrence: None)
  Receive Date: 20110505
  Receipt Date: 20110502
  Transmission Date: 20111010
  Serious: Yes (Other)
  Sender: FDA-Public Use
  Company Number: US-PFIZER INC-2011094629

PATIENT
  Sex: Male
  Weight: 78 kg

DRUGS (5)
  1. XALATAN [Suspect]
     Indication: GLAUCOMA
     Dosage: ONE DROP, 1X/DAY,  IN EACH EYE
     Route: 047
  2. XALATAN [Suspect]
     Dosage: ONE DROP, 1X/DAY, IN LEFT EYE
     Route: 047
  3. DORZOLAMIDE [Concomitant]
     Dosage: UNK
  4. BRIMONIDINE [Concomitant]
     Dosage: UNK
  5. TIMOLOL [Concomitant]
     Dosage: UNK

REACTIONS (2)
  - CATARACT [None]
  - GLAUCOMA [None]
